FAERS Safety Report 17565482 (Version 2)
Quarter: 2020Q2

REPORT INFORMATION
  Report Type: Spontaneous
  Country: US (occurrence: US)
  Receive Date: 20200320
  Receipt Date: 20200421
  Transmission Date: 20200713
  Serious: No
  Sender: FDA-Public Use
  Company Number: US-VERTEX PHARMACEUTICALS-2020-003675

PATIENT
  Age: 36 Year
  Sex: Male

DRUGS (2)
  1. CIPROFLOXACIN. [Concomitant]
     Active Substance: CIPROFLOXACIN
  2. TRIKAFTA [Suspect]
     Active Substance: ELEXACAFTOR\IVACAFTOR\TEZACAFTOR
     Indication: CYSTIC FIBROSIS
     Dosage: 2 TABS (100 MG ELEX/ 50 MG TEZ/ 75 MG IVA) AM; 1 TABLET (150MG IVA) PM.
     Route: 048
     Dates: start: 20200201, end: 20200218

REACTIONS (16)
  - Intestinal obstruction [Recovered/Resolved]
  - Decreased appetite [Unknown]
  - Feeling abnormal [Not Recovered/Not Resolved]
  - Anxiety [Not Recovered/Not Resolved]
  - Hypervigilance [Unknown]
  - Pain [Not Recovered/Not Resolved]
  - Testicular pain [Recovered/Resolved]
  - Nausea [Unknown]
  - Weight decreased [Unknown]
  - Delusion [Unknown]
  - Testicular disorder [Unknown]
  - Insomnia [Unknown]
  - Abdominal pain [Unknown]
  - Pain in extremity [Not Recovered/Not Resolved]
  - Back pain [Unknown]
  - Blood pressure increased [Unknown]

NARRATIVE: CASE EVENT DATE: 202002
